FAERS Safety Report 16608550 (Version 2)
Quarter: 2019Q3

REPORT INFORMATION
  Report Type: Spontaneous
  Country: US (occurrence: US)
  Receive Date: 20190722
  Receipt Date: 20190919
  Transmission Date: 20191004
  Serious: Yes (Hospitalization, Other)
  Sender: FDA-Public Use
  Company Number: US-PFIZER INC-2017502316

PATIENT
  Age: 83 Year
  Sex: Female

DRUGS (3)
  1. PREMARIN [Suspect]
     Active Substance: ESTROGENS, CONJUGATED
     Indication: ATROPHIC VULVOVAGINITIS
     Dosage: 0.5 G, 2X/WEEK
     Route: 067
  2. PREMARIN [Suspect]
     Active Substance: ESTROGENS, CONJUGATED
     Indication: UTERINE DISORDER
     Dosage: UNK, DAILY (FOR TWO WEEKS)
  3. PREMARIN [Suspect]
     Active Substance: ESTROGENS, CONJUGATED
     Dosage: UNK, 2X/WEEK

REACTIONS (3)
  - Vaginal haemorrhage [Recovered/Resolved]
  - Off label use [Unknown]
  - Skin disorder [Unknown]
